FAERS Safety Report 8552525-5 (Version None)
Quarter: 2012Q3

REPORT INFORMATION
  Report Type: 
  Country: None (occurrence: None)
  Receive Date: 20120731
  Receipt Date: 20120717
  Transmission Date: 20120928
  Serious: Yes (Death, Hospitalization)
  Sender: FDA-Public Use
  Company Number: GB-MYLANLABS-2012S1014681

PATIENT
  Age: 19 Year
  Sex: Male

DRUGS (2)
  1. NEFOPAM [Suspect]
     Indication: INTENTIONAL OVERDOSE
     Dosage: 60X30MG TABLETS
     Route: 048
  2. DICLOFENAC [Suspect]
     Indication: INTENTIONAL OVERDOSE
     Dosage: 14X50MG TABLETS
     Route: 048

REACTIONS (3)
  - CONVULSION [None]
  - INTENTIONAL OVERDOSE [None]
  - CARDIO-RESPIRATORY ARREST [None]
